FAERS Safety Report 8492413-6 (Version None)
Quarter: 2012Q2

REPORT INFORMATION
  Report Type: 
  Country: None (occurrence: None)
  Receive Date: 20120629
  Receipt Date: 20120629
  Transmission Date: 20120825
  Serious: Yes (Hospitalization)
  Sender: FDA-Public Use
  Company Number: None

PATIENT
  Age: 68 Year
  Sex: Male
  Weight: 73.4 kg

DRUGS (1)
  1. WARFARIN SODIUM [Suspect]

REACTIONS (6)
  - LIVER DISORDER [None]
  - HAEMORRHAGE [None]
  - HAEMATOCRIT DECREASED [None]
  - PORTAL VEIN THROMBOSIS [None]
  - FISTULA [None]
  - ANEURYSM [None]
